FAERS Safety Report 4451536-9 (Version None)
Quarter: 2004Q3

REPORT INFORMATION
  Report Type: 
  Country: None (occurrence: None)
  Receive Date: 20040916
  Receipt Date: 20040127
  Transmission Date: 20050211
  Serious: Yes (Death, Life-Threatening, Hospitalization, Other)
  Sender: FDA-Public Use
  Company Number: JP-BRISTOL-MYERS SQUIBB COMPANY-12494654

PATIENT
  Age: 15 Year
  Sex: Female

DRUGS (5)
  1. ENDOXAN [Suspect]
     Indication: LYMPHOMA
  2. LASTET [Suspect]
     Indication: LYMPHOMA
  3. METHOTREXATE [Suspect]
     Indication: LYMPHOMA
  4. ADRIACIN [Suspect]
     Indication: LYMPHOMA
  5. CYTARABINE [Suspect]
     Indication: LYMPHOMA

REACTIONS (6)
  - ANAPHYLACTIC REACTION [None]
  - BONE SARCOMA [None]
  - CARDIAC FAILURE [None]
  - HEPATOCELLULAR DAMAGE [None]
  - NEPHROPATHY [None]
  - TREATMENT RELATED SECONDARY MALIGNANCY [None]
